FAERS Safety Report 10133008 (Version 2)
Quarter: 2014Q3

REPORT INFORMATION
  Report Type: Spontaneous
  Country: US (occurrence: US)
  Receive Date: 20140428
  Receipt Date: 20140731
  Transmission Date: 20150326
  Serious: No
  Sender: FDA-Public Use
  Company Number: US-GILEAD-2014-0100620

PATIENT
  Sex: Female

DRUGS (12)
  1. METOPROLOL [Concomitant]
     Active Substance: METOPROLOL
  2. METFORMIN [Concomitant]
     Active Substance: METFORMIN HYDROCHLORIDE
  3. NOVOLOG [Concomitant]
     Active Substance: INSULIN ASPART
  4. TRICOR                             /00499301/ [Concomitant]
  5. POTASSIUM [Concomitant]
     Active Substance: POTASSIUM
  6. ZOCOR [Concomitant]
     Active Substance: SIMVASTATIN
  7. NITROGLYCERIN. [Concomitant]
     Active Substance: NITROGLYCERIN
  8. ASPIRIN. [Concomitant]
     Active Substance: ASPIRIN
  9. LETAIRIS [Suspect]
     Active Substance: AMBRISENTAN
     Indication: PULMONARY HYPERTENSION
     Dosage: 5 MG, QD
     Route: 065
     Dates: start: 20140423
  10. LOSARTAN [Concomitant]
     Active Substance: LOSARTAN
  11. GLIMEPIRIDE. [Concomitant]
     Active Substance: GLIMEPIRIDE
  12. LASIX [Concomitant]
     Active Substance: FUROSEMIDE

REACTIONS (5)
  - Nasal congestion [Not Recovered/Not Resolved]
  - Dyspnoea [Unknown]
  - Headache [Not Recovered/Not Resolved]
  - Fluid retention [Unknown]
  - Swelling [Not Recovered/Not Resolved]
